FAERS Safety Report 7597285-X (Version None)
Quarter: 2011Q3

REPORT INFORMATION
  Report Type: 
  Country: None (occurrence: None)
  Receive Date: 20110708
  Receipt Date: 20110304
  Transmission Date: 20111222
  Serious: No
  Sender: FDA-Public Use
  Company Number: US-GLAXOSMITHKLINE-A0916763A

PATIENT
  Age: 6 Year
  Sex: Female
  Weight: 27.3 kg

DRUGS (2)
  1. NO CONCURRENT MEDICATION [Concomitant]
  2. FLOVENT [Suspect]
     Indication: ASTHMA
     Dosage: 1PUFF PER DAY
     Route: 055

REACTIONS (3)
  - DRUG INEFFECTIVE [None]
  - COUGH [None]
  - PRODUCT QUALITY ISSUE [None]
